FAERS Safety Report 7524649-2 (Version None)
Quarter: 2011Q2

REPORT INFORMATION
  Report Type: 
  Country: None (occurrence: None)
  Receive Date: 20110606
  Receipt Date: 20110526
  Transmission Date: 20111010
  Serious: Yes (Other)
  Sender: FDA-Public Use
  Company Number: US-JNJFOC-20110312388

PATIENT
  Sex: Female
  Weight: 42.18 kg

DRUGS (7)
  1. PROZAC [Concomitant]
     Indication: FIBROMYALGIA
     Route: 048
     Dates: start: 19990101
  2. METOPROLOL TARTRATE [Concomitant]
     Indication: BLOOD PRESSURE
     Route: 048
     Dates: start: 19990101
  3. LISINOPRIL [Concomitant]
     Indication: BLOOD PRESSURE
     Route: 048
     Dates: start: 19990101
  4. TEMAZEPAM [Concomitant]
     Indication: SLEEP DISORDER
     Route: 048
     Dates: start: 19990101
  5. OMEPRAZOLE [Concomitant]
     Indication: GASTRIC DISORDER
     Route: 048
     Dates: start: 19990101
  6. LOVASTATIN [Concomitant]
     Indication: BLOOD CHOLESTEROL ABNORMAL
     Route: 048
     Dates: start: 19990101
  7. LEVAQUIN [Suspect]
     Indication: PNEUMONIA
     Route: 048
     Dates: start: 20110318, end: 20110318

REACTIONS (7)
  - CONFUSIONAL STATE [None]
  - TREMOR [None]
  - ABNORMAL LOSS OF WEIGHT [None]
  - DISORIENTATION [None]
  - MEMORY IMPAIRMENT [None]
  - HYPOAESTHESIA [None]
  - DIARRHOEA [None]
